FAERS Safety Report 19381950 (Version 1)
Quarter: 2021Q2

REPORT INFORMATION
  Report Type: Spontaneous
  Country: US (occurrence: US)
  Receive Date: 20210607
  Receipt Date: 20210607
  Transmission Date: 20210717
  Serious: Yes (Other)
  Sender: FDA-Public Use
  Company Number: US-CIPLA LTD.-2021US03871

PATIENT

DRUGS (1)
  1. NADOLOL. [Suspect]
     Active Substance: NADOLOL
     Dosage: UNK
     Route: 064

REACTIONS (10)
  - Bradycardia neonatal [Unknown]
  - Oxygen saturation decreased [Unknown]
  - Hypoglycaemia neonatal [Recovered/Resolved]
  - Small for dates baby [Unknown]
  - Foetal exposure during pregnancy [Unknown]
  - Agitation [Unknown]
  - Foetal heart rate abnormal [Unknown]
  - Premature baby [Unknown]
  - Body mass index decreased [Unknown]
  - Low birth weight baby [Unknown]
